FAERS Safety Report 23899407 (Version 1)
Quarter: 2024Q2

REPORT INFORMATION
  Report Type: Other
  Country: US (occurrence: None)
  Receive Date: 20240526
  Receipt Date: 20240526
  Transmission Date: 20240716
  Serious: Yes (Hospitalization)
  Sender: FDA-Public Use
  Company Number: US-ROCHE-3563367

PATIENT
  Age: 30 Year
  Sex: Female

DRUGS (26)
  1. OCREVUS [Suspect]
     Active Substance: OCRELIZUMAB
     Indication: Primary progressive multiple sclerosis
     Dosage: THEN ONCE IN 6 MONTHS?1ST HALF INFUSION OF OCRELIZUMAB WAS RECEIVED ON 02/JULY/2021 AND 2ND HALF INF
     Route: 042
     Dates: start: 20210202
  2. BENADRYL [Concomitant]
     Active Substance: DIPHENHYDRAMINE HYDROCHLORIDE
  3. CETIRIZINE HYDROCHLORIDE [Concomitant]
     Active Substance: CETIRIZINE HYDROCHLORIDE
  4. CYCLOBENZAPRINE [Concomitant]
     Active Substance: CYCLOBENZAPRINE
  5. FLUDROCORTISONE [Concomitant]
     Active Substance: FLUDROCORTISONE
  6. MAGNESIUM [Concomitant]
     Active Substance: MAGNESIUM
  7. MELOXICAM [Concomitant]
     Active Substance: MELOXICAM
  8. MODAFINIL [Concomitant]
     Active Substance: MODAFINIL
  9. OXCARBAZEPINE [Concomitant]
     Active Substance: OXCARBAZEPINE
  10. CALCIUM CARBONATE\SODIUM ALGINATE\SODIUM BICARBONATE [Concomitant]
     Active Substance: CALCIUM CARBONATE\SODIUM ALGINATE\SODIUM BICARBONATE
  11. FAMOTIDINE [Concomitant]
     Active Substance: FAMOTIDINE
  12. IVABRADINE [Concomitant]
     Active Substance: IVABRADINE
  13. MIRENA [Concomitant]
     Active Substance: LEVONORGESTREL
  14. MELATONIN [Concomitant]
     Active Substance: MELATONIN
  15. HERBALS\TURMERIC [Concomitant]
     Active Substance: HERBALS\TURMERIC
  16. VITAMIN C [Concomitant]
     Active Substance: ASCORBIC ACID
  17. VRAYLAR [Concomitant]
     Active Substance: CARIPRAZINE
  18. HEPARIN [Concomitant]
     Active Substance: HEPARIN SODIUM
  19. VITAMIN D3 [Concomitant]
     Active Substance: CHOLECALCIFEROL
  20. BACLOFEN [Concomitant]
     Active Substance: BACLOFEN
  21. GUANFACINE [Concomitant]
     Active Substance: GUANFACINE
  22. LORAZEPAM [Concomitant]
     Active Substance: LORAZEPAM
  23. OXYCODONE HYDROCHLORIDE [Concomitant]
     Active Substance: OXYCODONE HYDROCHLORIDE
  24. ERGOCALCIFEROL [Concomitant]
     Active Substance: ERGOCALCIFEROL
  25. ONDANSETRON [Concomitant]
     Active Substance: ONDANSETRON
  26. MEDROL [Concomitant]
     Active Substance: METHYLPREDNISOLONE

REACTIONS (3)
  - Haematological infection [Not Recovered/Not Resolved]
  - Malaise [Not Recovered/Not Resolved]
  - Infection [Unknown]
